FAERS Safety Report 8900188 (Version 4)
Quarter: 2014Q2

REPORT INFORMATION
  Report Type: Report from Study
  Country: US (occurrence: US)
  Receive Date: 20121109
  Receipt Date: 20140630
  Transmission Date: 20141212
  Serious: Yes (Death, Other)
  Sender: FDA-Public Use
  Company Number: US-ALEXION PHARMACEUTICALS INC.-A201202087

PATIENT
  Sex: 0

DRUGS (1)
  1. SOLIRIS [Suspect]
     Indication: HAEMOLYTIC URAEMIC SYNDROME
     Dosage: UNK
     Route: 042
     Dates: start: 201208, end: 201208

REACTIONS (15)
  - Death [Fatal]
  - Cerebrovascular accident [Unknown]
  - Neoplasm malignant [Unknown]
  - Chronic obstructive pulmonary disease [Unknown]
  - Renal disorder [Unknown]
  - Haemoglobinuria [Unknown]
  - Rheumatoid arthritis [Unknown]
  - Thyroid disorder [Unknown]
  - Hypertension [Unknown]
  - Pain [Unknown]
  - Restless legs syndrome [Unknown]
  - Activities of daily living impaired [Unknown]
  - Fatigue [Unknown]
  - Diarrhoea [Unknown]
  - Abdominal pain [Unknown]
